FAERS Safety Report 7737409-4 (Version None)
Quarter: 2011Q3

REPORT INFORMATION
  Report Type: 
  Country: None (occurrence: None)
  Receive Date: 20110908
  Receipt Date: 20110831
  Transmission Date: 20111222
  Serious: Yes (Other)
  Sender: FDA-Public Use
  Company Number: CH-ABBOTT-11P-151-0850778-00

PATIENT
  Age: 61 Day
  Sex: Female

DRUGS (9)
  1. EFFEXOR [Interacting]
     Indication: DEPRESSION
     Dates: end: 20100923
  2. EFFEXOR [Interacting]
     Route: 048
     Dates: start: 20100929
  3. ANXIOLIT [Concomitant]
     Indication: PRODUCT USED FOR UNKNOWN INDICATION
  4. SERETIDE [Concomitant]
     Indication: PRODUCT USED FOR UNKNOWN INDICATION
  5. NEXIUM [Concomitant]
     Indication: PRODUCT USED FOR UNKNOWN INDICATION
  6. EFFEXOR [Interacting]
     Route: 048
     Dates: start: 20100924, end: 20100928
  7. INDERAL [Suspect]
     Indication: GENERAL PHYSICAL HEALTH DETERIORATION
     Route: 048
     Dates: end: 20100930
  8. INDERAL [Suspect]
     Indication: ALCOHOL POISONING
  9. METOCLOPRAMIDE HYDROCHLORIDE [Interacting]
     Indication: GENERAL PHYSICAL HEALTH DETERIORATION
     Route: 048
     Dates: start: 20100924, end: 20100930

REACTIONS (4)
  - HYPOTENSION [None]
  - DRUG INTERACTION [None]
  - ASTHENIA [None]
  - THERAPEUTIC RESPONSE INCREASED [None]
